FAERS Safety Report 15693872 (Version 1)
Quarter: 2018Q4

REPORT INFORMATION
  Report Type: Spontaneous
  Country: US (occurrence: US)
  Receive Date: 20181206
  Receipt Date: 20181206
  Transmission Date: 20190205
  Serious: Yes (Other)
  Sender: FDA-Public Use
  Company Number: US-UCBSA-2018044398

PATIENT
  Sex: Female
  Weight: 82 kg

DRUGS (1)
  1. NEUPRO [Suspect]
     Active Substance: ROTIGOTINE
     Indication: RESTLESS LEGS SYNDROME
     Dosage: 1 MG, ONCE DAILY (QD)
     Dates: start: 201808

REACTIONS (3)
  - Wrong technique in product usage process [Unknown]
  - Restless legs syndrome [Recovered/Resolved with Sequelae]
  - Product adhesion issue [Unknown]

NARRATIVE: CASE EVENT DATE: 2018
